FAERS Safety Report 9086355 (Version 2)
Quarter: 2013Q2

REPORT INFORMATION
  Report Type: Spontaneous
  Country: US (occurrence: US)
  Receive Date: 20130131
  Receipt Date: 20130401
  Transmission Date: 20140414
  Serious: Yes (Hospitalization)
  Sender: FDA-Public Use
  Company Number: US-BAYER-2013-011521

PATIENT
  Age: 33 Year
  Sex: Female
  Weight: 77.55 kg

DRUGS (7)
  1. YAZ [Suspect]
  2. YASMIN [Suspect]
  3. LISINOPRIL [Concomitant]
  4. HYDROCHLOROTHIAZIDE [Concomitant]
  5. METOPROLOL [Concomitant]
  6. COZAAR [Concomitant]
  7. PRAVASTATIN [Concomitant]

REACTIONS (5)
  - Deep vein thrombosis [None]
  - Myocardial infarction [None]
  - Injury [None]
  - Pain [None]
  - Pain [None]
